FAERS Safety Report 6787547-8 (Version None)
Quarter: 2010Q2

REPORT INFORMATION
  Report Type: 
  Country: None (occurrence: None)
  Receive Date: 20100623
  Receipt Date: 20100611
  Transmission Date: 20101027
  Serious: Yes (Hospitalization, Other)
  Sender: FDA-Public Use
  Company Number: US-ROCHE-709226

PATIENT
  Age: 57 Year
  Sex: Female

DRUGS (9)
  1. PEGINTERFERON ALFA-2A [Suspect]
     Route: 065
  2. RIBAVIRIN [Suspect]
     Route: 065
  3. TENOFOVIR DISOPROXIL FUMARATE [Suspect]
     Route: 065
     Dates: start: 20010801
  4. LOPINAVIR/RITONAVIR [Concomitant]
     Dosage: DOSAGE: 400 MG/100 MG.
     Route: 065
     Dates: start: 20010801
  5. NEVIRAPINE [Concomitant]
     Route: 065
     Dates: start: 20010801
  6. RISPERIDONE [Concomitant]
  7. BENZTROPINE MESYLATE [Concomitant]
  8. TRAZODONE HYDROCHLORIDE [Concomitant]
  9. MULTI-VITAMIN [Concomitant]

REACTIONS (3)
  - ANAEMIA [None]
  - RENAL FAILURE ACUTE [None]
  - RENAL TUBULAR NECROSIS [None]
